FAERS Safety Report 8177243-7 (Version None)
Quarter: 2012Q1

REPORT INFORMATION
  Report Type: 
  Country: None (occurrence: None)
  Receive Date: 20120301
  Receipt Date: 20120220
  Transmission Date: 20120608
  Serious: Yes (Other)
  Sender: FDA-Public Use
  Company Number: JP-BRISTOL-MYERS SQUIBB COMPANY-16408197

PATIENT
  Age: 49 Year
  Sex: Male

DRUGS (2)
  1. HEPSERA [Suspect]
  2. BARACLUDE [Suspect]
     Route: 048
     Dates: start: 20120201

REACTIONS (1)
  - FANCONI SYNDROME ACQUIRED [None]
